FAERS Safety Report 4623514-8 (Version None)
Quarter: 2005Q1

REPORT INFORMATION
  Report Type: 
  Country: None (occurrence: None)
  Receive Date: 20050330
  Receipt Date: 20050308
  Transmission Date: 20050727
  Serious: Yes (Hospitalization)
  Sender: FDA-Public Use
  Company Number: THYM-10420

PATIENT
  Age: 27 Year
  Sex: Male
  Weight: 113.3993 kg

DRUGS (4)
  1. THYMOGLOBULIN [Suspect]
     Indication: RENAL TRANSPLANT
     Dosage: 150 MG QD
     Dates: start: 20031111, end: 20031114
  2. PROGRAF [Concomitant]
  3. ARAVA [Concomitant]
  4. PREDNISONE [Concomitant]

REACTIONS (2)
  - GLOMERULONEPHRITIS FOCAL [None]
  - KIDNEY TRANSPLANT REJECTION [None]
